FAERS Safety Report 7896367-2 (Version None)
Quarter: 2011Q4

REPORT INFORMATION
  Report Type: 
  Country: None (occurrence: None)
  Receive Date: 20111106
  Receipt Date: 20110908
  Transmission Date: 20120403
  Serious: No
  Sender: FDA-Public Use
  Company Number: US-AMGEN-USASP2011046111

PATIENT
  Age: 12 Year
  Sex: Female

DRUGS (2)
  1. ENBREL [Suspect]
     Indication: ARTHRITIS
     Dosage: 12.5 MG, 2 TIMES/WK
     Dates: start: 20110101
  2. ADVAIR DISKUS 100/50 [Concomitant]

REACTIONS (1)
  - RASH [None]
